FAERS Safety Report 21054948 (Version 2)
Quarter: 2022Q3

REPORT INFORMATION
  Report Type: Report from Study
  Country: AR (occurrence: AR)
  Receive Date: 20220707
  Receipt Date: 20220719
  Transmission Date: 20221027
  Serious: No
  Sender: FDA-Public Use
  Company Number: AR-BIOGEN-2022BI01137144

PATIENT
  Age: 29 Year
  Sex: Male

DRUGS (2)
  1. TYSABRI [Suspect]
     Active Substance: NATALIZUMAB
     Indication: Multiple sclerosis
     Route: 050
     Dates: start: 20130221
  2. LANTUS [Concomitant]
     Active Substance: INSULIN GLARGINE
     Indication: Product used for unknown indication
     Dosage: ONCE PER DAY
     Route: 050

REACTIONS (2)
  - Mobility decreased [Not Recovered/Not Resolved]
  - Anal sphincter atony [Not Recovered/Not Resolved]

NARRATIVE: CASE EVENT DATE: 20220102
